FAERS Safety Report 8515502-6 (Version None)
Quarter: 2012Q3

REPORT INFORMATION
  Report Type: 
  Country: None (occurrence: None)
  Receive Date: 20120717
  Receipt Date: 20120712
  Transmission Date: 20120928
  Serious: Yes (Death)
  Sender: FDA-Public Use
  Company Number: US-CELGENEUS-163-21880-12071372

PATIENT
  Sex: Female

DRUGS (8)
  1. REVLIMID [Suspect]
     Indication: MYELODYSPLASTIC SYNDROME
     Dosage: 5 MILLIGRAM
     Route: 048
     Dates: start: 20110128, end: 20120101
  2. ATENOLOL [Concomitant]
     Route: 065
  3. PROCRIT [Concomitant]
     Route: 065
  4. DOXAZOSIN MESYLATE [Concomitant]
     Route: 065
  5. ASPIRIN [Concomitant]
     Dosage: 81 MILLIGRAM
     Route: 065
  6. ULORIC [Concomitant]
     Route: 065
  7. VITAMIN D [Concomitant]
     Route: 065
  8. FUROSEMIDE [Concomitant]
     Route: 065

REACTIONS (1)
  - DEATH [None]
